FAERS Safety Report 11181925 (Version 2)
Quarter: 2016Q3

REPORT INFORMATION
  Report Type: Spontaneous
  Country: US (occurrence: US)
  Receive Date: 20150611
  Receipt Date: 20160915
  Transmission Date: 20161109
  Serious: No
  Sender: FDA-Public Use
  Company Number: US-ASTELLAS-2015US015352

PATIENT
  Age: 71 Year
  Sex: Male

DRUGS (1)
  1. XTANDI [Suspect]
     Active Substance: ENZALUTAMIDE
     Indication: PROSTATE CANCER
     Route: 048
     Dates: start: 20150402

REACTIONS (5)
  - Asthenia [Unknown]
  - Lethargy [Unknown]
  - Fatigue [Unknown]
  - Laziness [Unknown]
  - Vomiting [Unknown]

NARRATIVE: CASE EVENT DATE: 201504
